FAERS Safety Report 7893913-X (Version None)
Quarter: 2011Q4

REPORT INFORMATION
  Report Type: 
  Country: None (occurrence: None)
  Receive Date: 20111104
  Receipt Date: 20111028
  Transmission Date: 20120403
  Serious: Yes (Other)
  Sender: FDA-Public Use
  Company Number: MX-PFIZER INC-2011140014

PATIENT
  Age: 78 Year
  Sex: Male

DRUGS (4)
  1. LINEZOLID [Suspect]
     Indication: INFECTION
     Dosage: 600 MG, 2X/DAY
     Route: 048
     Dates: start: 20100401, end: 20110801
  2. AMLODIPINE/TELMISARTAN [Concomitant]
  3. LINEZOLID [Suspect]
     Dosage: 600 MG, 1X/DAY
  4. CAPTOPRIL [Concomitant]

REACTIONS (1)
  - ANAEMIA [None]
